FAERS Safety Report 6572094-9 (Version None)
Quarter: 2010Q1

REPORT INFORMATION
  Report Type: 
  Country: None (occurrence: None)
  Receive Date: 20100205
  Receipt Date: 20100125
  Transmission Date: 20100710
  Serious: Yes (Hospitalization, Other)
  Sender: FDA-Public Use
  Company Number: PHHY2009IT37430

PATIENT
  Sex: Female

DRUGS (9)
  1. TAREG [Suspect]
     Indication: CARDIOMYOPATHY
     Dosage: 40 MG DAILY
     Dates: start: 20090803, end: 20090825
  2. PLAVIX [Suspect]
     Indication: CARDIOVASCULAR DISORDER
     Dosage: 75 MG DAILY
     Route: 048
     Dates: start: 20090803, end: 20090825
  3. ASCRIPTIN [Suspect]
     Indication: CARDIOMYOPATHY
     Dosage: 150 MG DAILY
     Route: 048
     Dates: start: 20090803, end: 20090825
  4. ASCRIPTIN [Suspect]
     Dosage: 150 MG DAILY
  5. PANTORC [Concomitant]
     Indication: GASTRITIS
     Dosage: 40 MG DAILY
     Route: 048
     Dates: start: 20090803, end: 20090825
  6. KANRENOL [Concomitant]
     Indication: CARDIOMYOPATHY
     Dosage: 25 MG DAILY
     Route: 048
     Dates: start: 20090803, end: 20090825
  7. POTASSIUM CANRENOATE [Concomitant]
     Indication: CARDIOMYOPATHY
     Dosage: 50 MG DAILY
     Dates: start: 20090803, end: 20090825
  8. METOPROLOL TARTRATE [Concomitant]
     Indication: CARDIOMYOPATHY
     Dosage: 300 MG DAILY
     Dates: start: 20090803, end: 20090825
  9. TORVAST [Concomitant]
     Indication: CARDIOMYOPATHY
     Dosage: 40 MG DAILY
     Route: 048
     Dates: start: 20090803, end: 20090825

REACTIONS (2)
  - DERMATITIS EXFOLIATIVE GENERALISED [None]
  - ERYTHEMA [None]
